FAERS Safety Report 22217775 (Version 2)
Quarter: 2023Q2

REPORT INFORMATION
  Report Type: Spontaneous
  Country: US (occurrence: US)
  Receive Date: 20230417
  Receipt Date: 20230515
  Transmission Date: 20230721
  Serious: Yes (Death)
  Sender: FDA-Public Use
  Company Number: US-SAGENT PHARMACEUTICALS-2023SAG000078

PATIENT

DRUGS (6)
  1. GEMCITABINE [Suspect]
     Active Substance: GEMCITABINE
     Indication: Ductal adenocarcinoma of pancreas
     Dosage: 1000 MILLIGRAM/SQ. METER, DAYS 1, 8, AND 15 OF EACH 28-DAY CYCLE
     Route: 042
  2. PACLITAXEL [Suspect]
     Active Substance: PACLITAXEL
     Indication: Ductal adenocarcinoma of pancreas
     Dosage: 125 MILLIGRAM/SQ. METER, DAYS 1, 8, AND 15 OF EACH 28-DAY CYCLE
     Route: 042
  3. OXALIPLATIN [Suspect]
     Active Substance: OXALIPLATIN
     Indication: Ductal adenocarcinoma of pancreas
     Dosage: 85 MILLIGRAM/SQ. METER DAYS 1 AND 15 OF EACH 28-DAY CYCLE
     Route: 042
  4. LEUCOVORIN [Suspect]
     Active Substance: LEUCOVORIN
     Indication: Ductal adenocarcinoma of pancreas
     Dosage: 400 MILLIGRAM/SQ. METER DAYS 1 AND 15 OF EACH 28-DAY CYCLE
     Route: 042
  5. FLUOROURACIL [Suspect]
     Active Substance: FLUOROURACIL
     Indication: Ductal adenocarcinoma of pancreas
     Dosage: 400 MILLIGRAM/SQ. METER DAYS 1 AND 15 OF EACH 28-DAY CYCLE
     Route: 042
  6. FLUOROURACIL [Suspect]
     Active Substance: FLUOROURACIL
     Dosage: 2400 MILLIGRAM/SQ. METER DAYS 1, 2, 15, AND 16 OF EACH 28-DAY CYCLE
     Route: 042

REACTIONS (1)
  - Disseminated intravascular coagulation [Fatal]
